FAERS Safety Report 18643969 (Version 1)
Quarter: 2020Q4

REPORT INFORMATION
  Report Type: Spontaneous
  Country: CA (occurrence: CA)
  Receive Date: 20201221
  Receipt Date: 20201221
  Transmission Date: 20210114
  Serious: Yes (Other)
  Sender: FDA-Public Use
  Company Number: CA-BAYER-2020-276809

PATIENT
  Age: 31 Year
  Sex: Female

DRUGS (2)
  1. KYLEENA [Suspect]
     Active Substance: LEVONORGESTREL
     Indication: CONTRACEPTION
     Dosage: 17.5 ?G PER DAY CONTINOUSLY
     Route: 015
     Dates: start: 20180117, end: 20201202
  2. SECRETIN [Concomitant]
     Active Substance: SECRETIN

REACTIONS (8)
  - Weight increased [Recovered/Resolved]
  - Anxiety [None]
  - Breast tenderness [None]
  - Abdominal distension [Recovered/Resolved]
  - Abdominal pain lower [Recovered/Resolved]
  - Mental impairment [None]
  - Genital haemorrhage [Recovered/Resolved]
  - Menorrhagia [None]

NARRATIVE: CASE EVENT DATE: 201801
